FAERS Safety Report 19727137 (Version 1)
Quarter: 2021Q3

REPORT INFORMATION
  Report Type: Other
  Country: US (occurrence: US)
  Receive Date: 20210819
  Receipt Date: 20210819
  Transmission Date: 20211014
  Serious: Yes (Hospitalization, Other)
  Sender: FDA-Public Use
  Company Number: US-INVATECH-000135

PATIENT
  Age: 18 Year
  Sex: Female

DRUGS (11)
  1. OCTREOTIDE. [Suspect]
     Active Substance: OCTREOTIDE
     Indication: INTESTINAL PSEUDO-OBSTRUCTION
  2. METOCLOPRAMIDE. [Suspect]
     Active Substance: METOCLOPRAMIDE
     Indication: IMPAIRED GASTRIC EMPTYING
  3. MIRTAZAPINE. [Suspect]
     Active Substance: MIRTAZAPINE
     Indication: IMPAIRED GASTRIC EMPTYING
  4. PYRIDOSTIGMINE [Suspect]
     Active Substance: PYRIDOSTIGMINE
     Indication: INTESTINAL PSEUDO-OBSTRUCTION
  5. PYRIDOSTIGMINE [Suspect]
     Active Substance: PYRIDOSTIGMINE
     Indication: IMPAIRED GASTRIC EMPTYING
  6. ONDANSETRON [Suspect]
     Active Substance: ONDANSETRON
     Indication: INTESTINAL PSEUDO-OBSTRUCTION
  7. MIRTAZAPINE. [Suspect]
     Active Substance: MIRTAZAPINE
     Indication: INTESTINAL PSEUDO-OBSTRUCTION
  8. ONDANSETRON [Suspect]
     Active Substance: ONDANSETRON
     Indication: IMPAIRED GASTRIC EMPTYING
  9. OCTREOTIDE. [Suspect]
     Active Substance: OCTREOTIDE
     Indication: IMPAIRED GASTRIC EMPTYING
  10. PROMETHAZINE [Suspect]
     Active Substance: PROMETHAZINE HYDROCHLORIDE
     Indication: IMPAIRED GASTRIC EMPTYING
  11. PROMETHAZINE [Suspect]
     Active Substance: PROMETHAZINE HYDROCHLORIDE
     Indication: INTESTINAL PSEUDO-OBSTRUCTION

REACTIONS (3)
  - Treatment failure [Unknown]
  - Intestinal pseudo-obstruction [Recovered/Resolved]
  - Impaired gastric emptying [Recovered/Resolved]
